FAERS Safety Report 9923714 (Version 1)
Quarter: 2014Q1

REPORT INFORMATION
  Report Type: Spontaneous
  Country: US (occurrence: US)
  Receive Date: 20140225
  Receipt Date: 20140225
  Transmission Date: 20141002
  Serious: No
  Sender: FDA-Public Use
  Company Number: US-AMGEN-USASP2013091244

PATIENT
  Age: 49 Year
  Sex: Male

DRUGS (2)
  1. ENBREL [Suspect]
     Indication: PSORIATIC ARTHROPATHY
     Dosage: 50 MG, ONCE WEEKLY
     Route: 065
     Dates: start: 20130718
  2. SULFASALAZINE [Concomitant]
     Dosage: UNK UNK, 5 TABLETS A DAY
     Dates: start: 201212, end: 201312

REACTIONS (2)
  - Sinus headache [Not Recovered/Not Resolved]
  - Migraine [Not Recovered/Not Resolved]
